FAERS Safety Report 9980334 (Version 3)
Quarter: 2014Q3

REPORT INFORMATION
  Report Type: Report from Study
  Country: US (occurrence: US)
  Receive Date: 20140307
  Receipt Date: 20140917
  Transmission Date: 20150326
  Serious: Yes (Hospitalization, Other)
  Sender: FDA-Public Use
  Company Number: US-ROCHE-1106879

PATIENT
  Age: 61 Year
  Sex: Male
  Weight: 86.71 kg

DRUGS (4)
  1. TREANDA [Concomitant]
     Active Substance: BENDAMUSTINE HYDROCHLORIDE
     Indication: CHRONIC LYMPHOCYTIC LEUKAEMIA
     Dosage: ON D1AND 2
     Route: 042
     Dates: start: 20120712, end: 20120803
  2. DECADRON [Concomitant]
     Active Substance: DEXAMETHASONE
     Indication: CHRONIC LYMPHOCYTIC LEUKAEMIA
     Dosage: ON DAY1AND 2
     Route: 042
     Dates: start: 20120712, end: 20120803
  3. RITUXIMAB [Suspect]
     Active Substance: RITUXIMAB
     Indication: CHRONIC LYMPHOCYTIC LEUKAEMIA
     Dosage: LABEL STRENGTH : 1-1100 MG 2-500 MG, AMOUNT: 1100 MG DATE OF USE : 08/MAR/2013
     Route: 042
     Dates: start: 20120712, end: 20120802
  4. RITUXIMAB [Suspect]
     Active Substance: RITUXIMAB
     Dosage: LABEL STRENGTH : 1-1100 MG 2-500 MG, AMOUNT: 1100 MG
     Route: 042
     Dates: start: 20130308

REACTIONS (6)
  - Back pain [Recovered/Resolved]
  - Chest pain [Recovered/Resolved]
  - Anaemia [Recovered/Resolved]
  - Tumour flare [Unknown]
  - Hyperbilirubinaemia [Unknown]
  - Abdominal pain [Recovered/Resolved]

NARRATIVE: CASE EVENT DATE: 20120806
